FAERS Safety Report 11574362 (Version 1)
Quarter: 2015Q3

REPORT INFORMATION
  Report Type: Spontaneous
  Country: US (occurrence: None)
  Receive Date: 20150928
  Receipt Date: 20150928
  Transmission Date: 20151125
  Serious: Yes (Other)
  Sender: FDA-Public Use
  Company Number: None

PATIENT
  Age: 8 Year
  Sex: Male
  Weight: 27.22 kg

DRUGS (4)
  1. KEPPRA [Suspect]
     Active Substance: LEVETIRACETAM
     Indication: PETIT MAL EPILEPSY
     Dates: start: 20130520, end: 20130910
  2. ETHOSUXIMIDE. [Concomitant]
     Active Substance: ETHOSUXIMIDE
  3. MULTI VITAMIN [Concomitant]
     Active Substance: VITAMINS
  4. KEPPRA [Suspect]
     Active Substance: LEVETIRACETAM
     Indication: UNRESPONSIVE TO STIMULI
     Dates: start: 20130520, end: 20130910

REACTIONS (8)
  - Mood altered [None]
  - Hallucination [None]
  - Decreased interest [None]
  - Paranoia [None]
  - Anxiety [None]
  - Aggression [None]
  - Anger [None]
  - Insomnia [None]
